FAERS Safety Report 6788165-8 (Version None)
Quarter: 2010Q2

REPORT INFORMATION
  Report Type: 
  Country: None (occurrence: None)
  Receive Date: 20100623
  Receipt Date: 20080131
  Transmission Date: 20101027
  Serious: No
  Sender: FDA-Public Use
  Company Number: US-PFIZER INC-2008010601

PATIENT
  Sex: Female

DRUGS (2)
  1. XALATAN [Suspect]
     Indication: INTRAOCULAR PRESSURE INCREASED
     Route: 047
  2. DRUG, UNSPECIFIED [Concomitant]

REACTIONS (3)
  - EYE IRRITATION [None]
  - OCULAR HYPERAEMIA [None]
  - RASH PRURITIC [None]
